FAERS Safety Report 5467412-9 (Version None)
Quarter: 2007Q3

REPORT INFORMATION
  Report Type: 
  Country: None (occurrence: None)
  Receive Date: 20070920
  Receipt Date: 20070905
  Transmission Date: 20080115
  Serious: Yes (Hospitalization, Other)
  Sender: FDA-Public Use
  Company Number: 2007JP004285

PATIENT
  Age: 51 Year
  Sex: Male

DRUGS (6)
  1. TACROLIMUS [Suspect]
     Indication: RENAL TRANSPLANT
  2. STEROID() FORMULATION UNKNOWN [Suspect]
     Indication: RENAL TRANSPLANT
  3. MYCOPHENOLATE MOFETIL [Suspect]
     Indication: RENAL TRANSPLANT
  4. ROSIGLITAZONE [Concomitant]
  5. METFORMINE (METFORMIN HYDROCHLORIDE) [Concomitant]
  6. GLICLAZIDE (GLICLAZIDE) [Concomitant]

REACTIONS (11)
  - DIABETES MELLITUS [None]
  - DIARRHOEA [None]
  - ESCHERICHIA INFECTION [None]
  - GLYCOSYLATED HAEMOGLOBIN INCREASED [None]
  - GRAFT COMPLICATION [None]
  - HEART RATE INCREASED [None]
  - PLATELET COUNT DECREASED [None]
  - PYELONEPHRITIS [None]
  - RESPIRATORY FAILURE [None]
  - SEPTIC SHOCK [None]
  - UPPER RESPIRATORY TRACT INFECTION [None]
